FAERS Safety Report 26120380 (Version 1)
Quarter: 2025Q4

REPORT INFORMATION
  Report Type: Report from Study
  Country: US (occurrence: US)
  Receive Date: 20251204
  Receipt Date: 20251204
  Transmission Date: 20260117
  Serious: No
  Sender: LEO PHARM
  Company Number: US-LEO Pharma-384679

PATIENT
  Age: 78 Year
  Sex: Male

DRUGS (1)
  1. ANZUPGO [Suspect]
     Active Substance: DELGOCITINIB
     Indication: Product used for unknown indication
     Dosage: APPLY A THIN LAYER
     Dates: start: 20251111

REACTIONS (1)
  - Skin fissures [Unknown]
